FAERS Safety Report 14393733 (Version 1)
Quarter: 2018Q1

REPORT INFORMATION
  Report Type: Spontaneous
  Country: US (occurrence: US)
  Receive Date: 20180115
  Receipt Date: 20180115
  Transmission Date: 20180509
  Serious: Yes (Disabling, Other)
  Sender: FDA-Public Use
  Company Number: None

PATIENT
  Sex: Female
  Weight: 61.65 kg

DRUGS (3)
  1. PRAVASTATIN. [Suspect]
     Active Substance: PRAVASTATIN
     Indication: LOW DENSITY LIPOPROTEIN INCREASED
     Dosage: ?          QUANTITY:1 TABLET(S);?
     Route: 048
     Dates: start: 20171228, end: 20180106
  2. ATORVASTIN [Suspect]
     Active Substance: ATORVASTATIN
     Indication: LOW DENSITY LIPOPROTEIN INCREASED
     Dosage: ?          QUANTITY:1 TABLET(S);?
     Route: 048
     Dates: start: 20171221, end: 20171227
  3. VITAMINS (GNC) [Concomitant]

REACTIONS (4)
  - Feeling abnormal [None]
  - Pain in extremity [None]
  - Pelvic pain [None]
  - Dysphagia [None]

NARRATIVE: CASE EVENT DATE: 20180107
